FAERS Safety Report 6382644-3 (Version None)
Quarter: 2009Q3

REPORT INFORMATION
  Report Type: 
  Country: None (occurrence: None)
  Receive Date: 20090928
  Receipt Date: 20090928
  Transmission Date: 20100115
  Serious: Yes (Life-Threatening, Hospitalization, Other)
  Sender: FDA-Public Use
  Company Number: None

PATIENT
  Sex: Male
  Weight: 113.3993 kg

DRUGS (2)
  1. GLUCOPHAGE [Suspect]
     Indication: DIABETES MELLITUS
     Dosage: TAKE 1 TABLET ORALLY 2 TIMES DAILY PO
     Route: 048
     Dates: start: 20080101, end: 20090924
  2. GLUCOPHAGE [Suspect]
     Indication: DIABETES MELLITUS

REACTIONS (3)
  - PAIN [None]
  - PRODUCT CONTAMINATION [None]
  - THERAPEUTIC AGENT TOXICITY [None]
